APPROVED DRUG PRODUCT: NEOSAR
Active Ingredient: CYCLOPHOSPHAMIDE
Strength: 1GM/VIAL
Dosage Form/Route: INJECTABLE;INJECTION
Application: A040015 | Product #004
Applicant: TEVA PARENTERAL MEDICINES INC
Approved: Apr 29, 1993 | RLD: No | RS: No | Type: DISCN